FAERS Safety Report 19983709 (Version 1)
Quarter: 2021Q4

REPORT INFORMATION
  Report Type: Spontaneous
  Country: US (occurrence: US)
  Receive Date: 20211021
  Receipt Date: 20211021
  Transmission Date: 20220303
  Serious: Yes (Hospitalization)
  Sender: FDA-Public Use
  Company Number: None

PATIENT
  Age: 71 Year
  Sex: Male

DRUGS (1)
  1. EPOPROSTENOL [Suspect]
     Active Substance: EPOPROSTENOL
     Indication: Pulmonary arterial hypertension
     Dosage: ?OTHER DOSE:13NG/KG/MIN;?OTHER FREQUENCY:CONTINUOUS;
     Route: 042
     Dates: start: 20210722

REACTIONS (1)
  - Oedema [None]

NARRATIVE: CASE EVENT DATE: 20211019
